FAERS Safety Report 7138769-8 (Version None)
Quarter: 2010Q4

REPORT INFORMATION
  Report Type: 
  Country: None (occurrence: None)
  Receive Date: 20101206
  Receipt Date: 20101126
  Transmission Date: 20110411
  Serious: Yes (Other)
  Sender: FDA-Public Use
  Company Number: DE-PFIZER INC-2010158430

PATIENT
  Sex: Male

DRUGS (1)
  1. TREVILOR RETARD [Suspect]
     Dosage: UNK
     Dates: start: 20080101

REACTIONS (1)
  - GASTRIC CANCER [None]
